FAERS Safety Report 6186288-8 (Version None)
Quarter: 2009Q2

REPORT INFORMATION
  Report Type: 
  Country: None (occurrence: None)
  Receive Date: 20090511
  Receipt Date: 20090430
  Transmission Date: 20091009
  Serious: Yes (Other)
  Sender: FDA-Public Use
  Company Number: FR-SANOFI-SYNTHELABO-F01200900382

PATIENT
  Sex: Male
  Weight: 101 kg

DRUGS (8)
  1. CANDESARTAN [Concomitant]
     Indication: HYPERTENSION
  2. FLECAINE [Concomitant]
     Indication: HYPERTENSION
  3. KAYEXALATE [Concomitant]
     Indication: HYPERKALAEMIA
     Dates: start: 20070913
  4. GLUCOPHAGE [Concomitant]
     Indication: DIABETES MELLITUS
  5. GEMCITABINE HCL [Suspect]
     Dosage: DAY 2 EVERY 2 WEEKS
     Route: 041
     Dates: start: 20070830, end: 20080108
  6. RITUXIMAB [Suspect]
     Dosage: DAY 1 EVERY 2 WEEKS
     Route: 041
     Dates: start: 20070829, end: 20080107
  7. ENZASTAURIN [Suspect]
     Route: 048
     Dates: start: 20070829
  8. OXALIPLATIN [Suspect]
     Indication: DIFFUSE LARGE B-CELL LYMPHOMA RECURRENT
     Dosage: DAY 2 EVERY 2 WEEKS
     Route: 041
     Dates: start: 20080108, end: 20080108

REACTIONS (1)
  - MYELODYSPLASTIC SYNDROME [None]
